FAERS Safety Report 16584880 (Version 14)
Quarter: 2022Q2

REPORT INFORMATION
  Report Type: Report from Study
  Country: GB (occurrence: GB)
  Receive Date: 20190717
  Receipt Date: 20220603
  Transmission Date: 20220721
  Serious: Yes (Hospitalization)
  Sender: FDA-Public Use
  Company Number: PHHO2019GB007274

PATIENT
  Age: 5 Year
  Sex: Male
  Weight: 21 kg

DRUGS (9)
  1. ELTROMBOPAG [Suspect]
     Active Substance: ELTROMBOPAG
     Indication: Aplastic anaemia
     Dosage: 50 MG, QD
     Route: 048
     Dates: start: 20190501
  2. ELTROMBOPAG [Suspect]
     Active Substance: ELTROMBOPAG
  3. CYCLOSPORINE [Suspect]
     Active Substance: CYCLOSPORINE
     Indication: Aplastic anaemia
     Dosage: 180 MG, QD
     Route: 048
     Dates: start: 20190501
  4. CYCLOSPORINE [Suspect]
     Active Substance: CYCLOSPORINE
     Dosage: UNK
     Route: 048
     Dates: start: 20190603
  5. ACYCLOVIR [Suspect]
     Active Substance: ACYCLOVIR
     Indication: Product used for unknown indication
     Dosage: 200 MG, QID
     Route: 048
     Dates: start: 20190503, end: 20190514
  6. ACYCLOVIR [Suspect]
     Active Substance: ACYCLOVIR
     Dosage: DOSE FREQUENCY REDUCED (BID)
     Route: 048
  7. AMPHOTERICIN B [Suspect]
     Active Substance: AMPHOTERICIN B
     Indication: Product used for unknown indication
     Dosage: 19.7 MG, TIW
     Route: 042
     Dates: start: 20190503, end: 20190508
  8. CASPOFUNGIN [Concomitant]
     Active Substance: CASPOFUNGIN
     Indication: Product used for unknown indication
     Dosage: UNK
     Route: 065
  9. LANSOPRAZOLE [Concomitant]
     Active Substance: LANSOPRAZOLE
     Indication: Product used for unknown indication
     Dosage: 15 MG, QD
     Route: 048
     Dates: start: 20190506

REACTIONS (1)
  - Blood creatinine increased [Recovered/Resolved]

NARRATIVE: CASE EVENT DATE: 20190528
